FAERS Safety Report 7577475-2 (Version None)
Quarter: 2011Q2

REPORT INFORMATION
  Report Type: 
  Country: None (occurrence: None)
  Receive Date: 20110628
  Receipt Date: 20110616
  Transmission Date: 20111010
  Serious: Yes (Death, Hospitalization)
  Sender: FDA-Public Use
  Company Number: JP-SANOFI-AVENTIS-2011SA037201

PATIENT
  Age: 47 Year
  Sex: Male

DRUGS (3)
  1. LANTUS [Suspect]
     Indication: TYPE 1 DIABETES MELLITUS
     Route: 065
  2. NOVORAPID [Concomitant]
     Indication: TYPE 1 DIABETES MELLITUS
  3. ANTIDEPRESSANTS [Concomitant]

REACTIONS (4)
  - PNEUMONIA ASPIRATION [None]
  - PYREXIA [None]
  - HYPOGLYCAEMIC COMA [None]
  - RESPIRATORY DISORDER [None]
